FAERS Safety Report 8476555-7 (Version None)
Quarter: 2012Q2

REPORT INFORMATION
  Report Type: 
  Country: None (occurrence: None)
  Receive Date: 20120628
  Receipt Date: 20120615
  Transmission Date: 20120825
  Serious: No
  Sender: FDA-Public Use
  Company Number: US-ASTRAZENECA-2012SE40431

PATIENT
  Age: 33 Year
  Sex: Male
  Weight: 72.6 kg

DRUGS (3)
  1. KLONOPIN [Concomitant]
  2. SEROQUEL XR [Suspect]
     Route: 048
     Dates: start: 20120614
  3. SEROQUEL XR [Suspect]
     Indication: BIPOLAR DISORDER
     Route: 048
     Dates: start: 20111001, end: 20120301

REACTIONS (2)
  - LACK OF SATIETY [None]
  - WEIGHT INCREASED [None]
